FAERS Safety Report 10030253 (Version 1)
Quarter: 2014Q1

REPORT INFORMATION
  Report Type: Spontaneous
  Country: US (occurrence: US)
  Receive Date: 20140323
  Receipt Date: 20140323
  Transmission Date: 20141002
  Serious: No
  Sender: FDA-Public Use
  Company Number: US-ALLERGAN-1308084US

PATIENT
  Age: 44 Year
  Sex: Female

DRUGS (2)
  1. LATISSE 0.03% [Suspect]
     Indication: GROWTH OF EYELASHES
     Dosage: 2 GTT, QHS
     Route: 061
     Dates: start: 20130524, end: 20130528
  2. AROMATASE INHIBITOR [Concomitant]
     Indication: BREAST CANCER
     Dosage: UNK, QD
     Route: 048

REACTIONS (5)
  - Erythema [Recovering/Resolving]
  - Erythema [Recovering/Resolving]
  - Dry skin [Recovering/Resolving]
  - Inappropriate schedule of drug administration [Unknown]
  - Scleral hyperaemia [Recovering/Resolving]
